FAERS Safety Report 11288044 (Version 1)
Quarter: 2015Q3

REPORT INFORMATION
  Report Type: Spontaneous
  Country: None (occurrence: BR)
  Receive Date: 20150721
  Receipt Date: 20150721
  Transmission Date: 20151125
  Serious: Yes (Hospitalization, Disabling, Other)
  Sender: FDA-Public Use
  Company Number: BR-MERCK KGAA-1040624

PATIENT

DRUGS (1)
  1. NOVOTHYROX [Suspect]
     Active Substance: LEVOTHYROXINE SODIUM

REACTIONS (6)
  - Pain in extremity [None]
  - Lacunar infarction [None]
  - Weight decreased [None]
  - Blood glucose decreased [None]
  - Myocardial infarction [None]
  - Cerebral ischaemia [None]
